FAERS Safety Report 9735806 (Version 1)
Quarter: 2013Q4

REPORT INFORMATION
  Report Type: Spontaneous
  Country: US (occurrence: US)
  Receive Date: 20131206
  Receipt Date: 20131206
  Transmission Date: 20140711
  Serious: No
  Sender: FDA-Public Use
  Company Number: US-GILEAD-2009-0023174

PATIENT
  Sex: Female
  Weight: 63.5 kg

DRUGS (12)
  1. LETAIRIS [Suspect]
     Indication: PULMONARY ARTERIAL HYPERTENSION
     Route: 048
     Dates: start: 20090701
  2. METOPROLOL ER [Concomitant]
     Route: 048
  3. DIGOXIN [Concomitant]
     Route: 048
  4. RAMIPRIL [Concomitant]
     Route: 048
  5. FUROSEMIDE [Concomitant]
     Route: 048
  6. AMLODIPINE BESYLATE [Concomitant]
     Route: 048
  7. COUMADIN [Concomitant]
     Route: 048
  8. OMEGA 3 [Concomitant]
     Dosage: 1 DOSE
     Route: 048
  9. MULTIVITAMIN [Concomitant]
  10. POTASSIUM CHLORIDE [Concomitant]
     Route: 048
  11. VITAMIN B COMPLEX [Concomitant]
     Route: 048
  12. CALCIUM + VITAMIN D [Concomitant]
     Route: 048

REACTIONS (1)
  - Joint swelling [Unknown]
